FAERS Safety Report 8404838-5 (Version None)
Quarter: 2012Q2

REPORT INFORMATION
  Report Type: 
  Country: None (occurrence: None)
  Receive Date: 20120601
  Receipt Date: 20120523
  Transmission Date: 20120825
  Serious: Yes (Other)
  Sender: FDA-Public Use
  Company Number: US-ASTRAZENECA-2012SE33650

PATIENT
  Age: 36 Year
  Sex: Female

DRUGS (1)
  1. NEXIUM [Suspect]
     Route: 048

REACTIONS (7)
  - GASTROOESOPHAGEAL REFLUX DISEASE [None]
  - POSTOPERATIVE ADHESION [None]
  - MIGRAINE [None]
  - AORTIC INJURY [None]
  - HAEMORRHAGE [None]
  - CONDITION AGGRAVATED [None]
  - DRUG EFFECT DECREASED [None]
